FAERS Safety Report 10169488 (Version 1)
Quarter: 2014Q2

REPORT INFORMATION
  Report Type: Spontaneous
  Country: FR (occurrence: FR)
  Receive Date: 20140513
  Receipt Date: 20140513
  Transmission Date: 20141212
  Serious: Yes (Hospitalization)
  Sender: FDA-Public Use
  Company Number: FR-JNJFOC-20140506141

PATIENT
  Age: 86 Year
  Sex: Male

DRUGS (10)
  1. XARELTO [Suspect]
     Indication: THROMBOSIS PROPHYLAXIS
     Route: 048
     Dates: end: 20131024
  2. STILNOX [Concomitant]
     Route: 048
     Dates: start: 20130916
  3. TANGANIL [Concomitant]
     Dosage: MORNING AND EVENING
     Route: 048
     Dates: start: 20130916
  4. ROCEPHIN [Concomitant]
     Route: 065
  5. PRAVASTATIN [Concomitant]
     Route: 048
  6. PERMIXON [Concomitant]
     Dosage: 1 DF IN THE MORNING AND 1 DF IN THE EVENING
     Route: 048
  7. PACKED RED BLOOD CELLS [Concomitant]
     Indication: IRON DEFICIENCY ANAEMIA
     Dosage: 2
     Route: 065
  8. CORDARONE [Concomitant]
     Dosage: ON SATURDAY AND SUNDAY
     Route: 048
  9. CORDARONE [Concomitant]
     Route: 048
  10. TAREG [Concomitant]
     Route: 048

REACTIONS (1)
  - Iron deficiency anaemia [Recovered/Resolved]
